FAERS Safety Report 20876931 (Version 7)
Quarter: 2024Q4

REPORT INFORMATION
  Report Type: Report from Study
  Country: FR (occurrence: FR)
  Receive Date: 20220526
  Receipt Date: 20241103
  Transmission Date: 20250115
  Serious: Yes (Other)
  Sender: JOHNSON AND JOHNSON
  Company Number: FR-JNJFOC-20220532256

PATIENT
  Age: 44 Year
  Sex: Female

DRUGS (11)
  1. SPRAVATO [Suspect]
     Active Substance: ESKETAMINE
     Indication: Depression
     Dates: start: 20220411, end: 20220411
  2. SPRAVATO [Suspect]
     Active Substance: ESKETAMINE
     Dates: start: 20220414, end: 20220427
  3. SPRAVATO [Suspect]
     Active Substance: ESKETAMINE
     Dates: start: 20220726
  4. LAMOTRIGINE [Concomitant]
     Active Substance: LAMOTRIGINE
     Indication: Antidepressant therapy
     Route: 065
     Dates: start: 20190916, end: 20210802
  5. LITHIUM [Concomitant]
     Active Substance: LITHIUM
     Indication: Antidepressant therapy
     Route: 065
     Dates: start: 20200430, end: 20210802
  6. VENLAFAXINE [Concomitant]
     Active Substance: VENLAFAXINE HYDROCHLORIDE
     Indication: Antidepressant therapy
     Route: 065
     Dates: start: 20210329, end: 20220511
  7. MIANSERIN HYDROCHLORIDE [Concomitant]
     Active Substance: MIANSERIN HYDROCHLORIDE
     Indication: Antidepressant therapy
     Route: 065
     Dates: start: 20211021
  8. SERTRALINE [Concomitant]
     Active Substance: SERTRALINE HYDROCHLORIDE
     Indication: Antidepressant therapy
     Route: 065
     Dates: start: 20220411
  9. METFORMIN [Concomitant]
     Active Substance: METFORMIN HYDROCHLORIDE
     Indication: Diabetes mellitus
  10. GLICLAZIDE [Concomitant]
     Active Substance: GLICLAZIDE
     Indication: Diabetes mellitus
  11. XULTOPHY 100/3.6 [Concomitant]
     Active Substance: INSULIN DEGLUDEC\LIRAGLUTIDE
     Indication: Diabetes mellitus
     Route: 065
     Dates: start: 20190910

REACTIONS (1)
  - Diabetes mellitus [Recovered/Resolved]

NARRATIVE: CASE EVENT DATE: 20220427
